FAERS Safety Report 7020118-7 (Version None)
Quarter: 2010Q3

REPORT INFORMATION
  Report Type: 
  Country: None (occurrence: None)
  Receive Date: 20100929
  Receipt Date: 20100923
  Transmission Date: 20110219
  Serious: Yes (Hospitalization)
  Sender: FDA-Public Use
  Company Number: FR-JNJFOC-20030903711

PATIENT
  Age: 26 Year
  Sex: Female

DRUGS (1)
  1. TYLENOL W/ CODEINE [Suspect]
     Indication: TOOTHACHE

REACTIONS (1)
  - PANCREATITIS ACUTE [None]
